FAERS Safety Report 5901589-3 (Version None)
Quarter: 2008Q3

REPORT INFORMATION
  Report Type: 
  Country: None (occurrence: None)
  Receive Date: 20080925
  Receipt Date: 20080911
  Transmission Date: 20090109
  Serious: Yes (Hospitalization)
  Sender: FDA-Public Use
  Company Number: 2008AL010654

PATIENT
  Age: 18 Year
  Sex: Female

DRUGS (4)
  1. CITALOPRAM HYDROBROMIDE [Suspect]
     Indication: DEPRESSION
     Dosage: 20 MG;PO
     Route: 048
     Dates: start: 20080606, end: 20080621
  2. DIAZEPAM [Concomitant]
  3. CHLORPHENAMINE [Concomitant]
  4. PHENOXYMETHYL PENICILLIN [Concomitant]

REACTIONS (1)
  - ANAPHYLACTIC REACTION [None]
